FAERS Safety Report 25552569 (Version 1)
Quarter: 2025Q3

REPORT INFORMATION
  Report Type: Spontaneous
  Country: US (occurrence: US)
  Receive Date: 20250715
  Receipt Date: 20250715
  Transmission Date: 20251020
  Serious: Yes (Other)
  Sender: AUROBINDO
  Company Number: US-AUROBINDO-AUR-APL-2025-035119

PATIENT
  Age: 54 Year
  Sex: Female

DRUGS (3)
  1. RANOLAZINE [Suspect]
     Active Substance: RANOLAZINE
     Indication: Angina pectoris
     Route: 065
  2. NITROGLYCERIN [Suspect]
     Active Substance: NITROGLYCERIN
     Indication: Angina pectoris
     Route: 065
  3. ALLOPURINOL [Suspect]
     Active Substance: ALLOPURINOL
     Indication: Angina pectoris
     Route: 065

REACTIONS (1)
  - Drug ineffective [Unknown]
